FAERS Safety Report 22164042 (Version 1)
Quarter: 2023Q2

REPORT INFORMATION
  Report Type: Spontaneous
  Country: CN (occurrence: CN)
  Receive Date: 20230402
  Receipt Date: 20230402
  Transmission Date: 20230722
  Serious: Yes (Other)
  Sender: FDA-Public Use
  Company Number: CN-002147023-NVSC2023CN070451

PATIENT
  Age: 74 Year
  Sex: Male

DRUGS (2)
  1. CYCLOSPORINE [Suspect]
     Active Substance: CYCLOSPORINE
     Indication: Aplastic anaemia
     Dosage: 200 MG, QD (20 YEARS AGO)
     Route: 048
  2. CYCLOSPORINE [Suspect]
     Active Substance: CYCLOSPORINE
     Indication: Large granular lymphocytosis

REACTIONS (8)
  - Large granular lymphocytosis [Unknown]
  - Concomitant disease aggravated [Unknown]
  - Oedema [Unknown]
  - Hypertrichosis [Unknown]
  - Red blood cell count decreased [Unknown]
  - Off label use [Unknown]
  - Product selection error [Unknown]
  - Drug ineffective [Unknown]

NARRATIVE: CASE EVENT DATE: 20211101
